FAERS Safety Report 5890539-4 (Version None)
Quarter: 2008Q3

REPORT INFORMATION
  Report Type: 
  Country: None (occurrence: None)
  Receive Date: 20080922
  Receipt Date: 20080909
  Transmission Date: 20090109
  Serious: Yes (Hospitalization, Other)
  Sender: FDA-Public Use
  Company Number: PHEH2006US08130

PATIENT
  Age: 51 Year
  Sex: Male
  Weight: 78.005 kg

DRUGS (13)
  1. ZOMETA [Suspect]
  2. PREDNISONE (NGX) [Suspect]
  3. TETANUS VACCINE ^PASTEUR^ [Concomitant]
  4. BUSPAR [Concomitant]
  5. PROPOXYPHENE NAPSYLATE W/ ACETAMINOPHEN [Concomitant]
  6. METHADONE HCL [Concomitant]
  7. ZOLOFT [Concomitant]
  8. CELEBREX [Concomitant]
  9. HYDROCODONE BITARTRATE + ACETAMINOPHEN [Concomitant]
  10. KLONOPIN [Concomitant]
  11. ELAVIL [Concomitant]
  12. AUGMENTIN [Concomitant]
  13. DIGOXIN [Concomitant]

REACTIONS (45)
  - ACROCHORDON [None]
  - ANAEMIA [None]
  - ANIMAL BITE [None]
  - ANOGENITAL WARTS [None]
  - APPENDIX DISORDER [None]
  - ASTHENIA [None]
  - ATRIAL FIBRILLATION [None]
  - BACK INJURY [None]
  - BACK PAIN [None]
  - BONE DISORDER [None]
  - BONE NEOPLASM MALIGNANT [None]
  - BUNION [None]
  - BUNION OPERATION [None]
  - CONFUSIONAL STATE [None]
  - CYST [None]
  - DEFORMITY [None]
  - DEHYDRATION [None]
  - FIBROMYALGIA [None]
  - FRACTURE [None]
  - GLOSSODYNIA [None]
  - HIP ARTHROPLASTY [None]
  - HYPERHIDROSIS [None]
  - HYPERTENSION [None]
  - IMPAIRED HEALING [None]
  - KNEE ARTHROPLASTY [None]
  - LIMB INJURY [None]
  - MASTICATION DISORDER [None]
  - MULTIPLE MYELOMA [None]
  - MUSCULOSKELETAL PAIN [None]
  - NECK PAIN [None]
  - OSTEITIS [None]
  - OSTEOARTHRITIS [None]
  - OSTEONECROSIS [None]
  - OSTEOPOROSIS [None]
  - PAIN [None]
  - PYREXIA [None]
  - RASH [None]
  - RHEUMATOID ARTHRITIS [None]
  - SHOULDER ARTHROPLASTY [None]
  - SKIN ULCER [None]
  - STAPHYLOCOCCAL INFECTION [None]
  - STEM CELL TRANSPLANT [None]
  - TONGUE DISCOLOURATION [None]
  - TREMOR [None]
  - WEIGHT DECREASED [None]
